FAERS Safety Report 8249188-5 (Version None)
Quarter: 2012Q1

REPORT INFORMATION
  Report Type: 
  Country: None (occurrence: None)
  Receive Date: 20120328
  Receipt Date: 20120316
  Transmission Date: 20120608
  Serious: Yes (Hospitalization, Other)
  Sender: FDA-Public Use
  Company Number: 2010MA001276

PATIENT
  Sex: Female
  Weight: 89.8122 kg

DRUGS (53)
  1. FUROSEMIDE [Concomitant]
  2. MAGNESIUM OXIDE [Concomitant]
  3. MYSOLINE [Concomitant]
  4. TEMAZEPAM [Concomitant]
  5. GLIPIZIDE [Concomitant]
  6. HYDROCHLOROTHIAZIDE [Concomitant]
  7. KLOR-CON [Concomitant]
  8. TOPROL-XL [Concomitant]
  9. NAPROXEN [Concomitant]
  10. NITROFURANTOIN [Concomitant]
  11. PROMETHAZINE VC PLAIN [Concomitant]
  12. ALPRAZOLAM [Concomitant]
  13. AMOXICILLIN [Concomitant]
  14. CILOSTAZOL [Concomitant]
  15. GABAPENTIN [Concomitant]
  16. GLIPIZIDE [Concomitant]
  17. HYDROXYZINE PAMOATE [Concomitant]
  18. INSULIN [Concomitant]
  19. PLETAL [Concomitant]
  20. SOMA [Concomitant]
  21. ACCOLATE [Concomitant]
  22. BENZONATATE [Concomitant]
  23. NITROGLYCERIN [Concomitant]
  24. OXYCODONE HCL AND ACETAMINOPHEN [Concomitant]
  25. SINEMET [Concomitant]
  26. XANAX [Concomitant]
  27. METOCLOPRAMIDE [Suspect]
     Indication: GASTROOESOPHAGEAL REFLUX DISEASE
     Dosage: 10 MG;TID;PO
     Route: 048
     Dates: start: 20070102, end: 20091101
  28. CIPROFLOXACIN [Concomitant]
  29. DETROL LA [Concomitant]
  30. LANTUS [Concomitant]
  31. LISINOPRIL [Concomitant]
  32. MECLIZINE [Concomitant]
  33. PHENAZOPYRIDINE HCL TAB [Concomitant]
  34. PROMETHAZINE [Concomitant]
  35. ASPIRIN [Concomitant]
  36. CARBIDOPA AND LEVODOPA [Concomitant]
  37. ISOSORBIDE DINITRATE [Concomitant]
  38. LEXAPRO [Concomitant]
  39. PROVENTIL-HFA [Concomitant]
  40. SIMVASTATIN [Concomitant]
  41. AZITHROMYCIN [Concomitant]
  42. CARISOPRODOL [Concomitant]
  43. FLUCONAZOLE [Concomitant]
  44. METOPROLOL SUCCINATE EXTENDED RELEASE [Concomitant]
  45. NEXIUM [Concomitant]
  46. PERCOCET [Concomitant]
  47. POTASSIUM [Concomitant]
  48. TOPROL-XL [Concomitant]
  49. VITAMIN E [Concomitant]
  50. LASIX [Concomitant]
  51. METFORMIN HCL [Concomitant]
  52. METOPROLOL SUCCINATE [Concomitant]
  53. NYSTATIN-TRIAMCINOLONE [Concomitant]

REACTIONS (19)
  - DYSARTHRIA [None]
  - DEPRESSED MOOD [None]
  - DYSKINESIA [None]
  - NAUSEA [None]
  - BALANCE DISORDER [None]
  - TARDIVE DYSKINESIA [None]
  - INCORRECT DRUG ADMINISTRATION DURATION [None]
  - FEELING DRUNK [None]
  - ECONOMIC PROBLEM [None]
  - EMOTIONAL DISTRESS [None]
  - FRUSTRATION [None]
  - DEPRESSION [None]
  - GAIT DISTURBANCE [None]
  - PSYCHIATRIC SYMPTOM [None]
  - DISTURBANCE IN SOCIAL BEHAVIOUR [None]
  - EXCESSIVE EYE BLINKING [None]
  - CARDIAC FAILURE CONGESTIVE [None]
  - ANGER [None]
  - TREMOR [None]
